FAERS Safety Report 5083858-5 (Version None)
Quarter: 2006Q3

REPORT INFORMATION
  Report Type: 
  Country: None (occurrence: None)
  Receive Date: 20060818
  Receipt Date: 20060720
  Transmission Date: 20061208
  Serious: Yes (Life-Threatening, Hospitalization)
  Sender: FDA-Public Use
  Company Number: JP-MERCK-0607USA04587

PATIENT
  Age: 48 Year
  Sex: Male
  Weight: 41 kg

DRUGS (16)
  1. PRIMAXIN [Suspect]
     Indication: PNEUMONIA
     Route: 030
     Dates: start: 20060619, end: 20060619
  2. PRIMAXIN [Suspect]
     Route: 030
     Dates: start: 20060620, end: 20060622
  3. PRIMAXIN [Suspect]
     Route: 030
     Dates: start: 20060623, end: 20060623
  4. ISEPACIN [Suspect]
     Indication: PNEUMONIA
     Route: 030
     Dates: start: 20060628, end: 20060629
  5. FIRSTCIN [Suspect]
     Indication: PNEUMONIA
     Route: 042
     Dates: start: 20060615, end: 20060617
  6. FIRSTCIN [Suspect]
     Route: 042
     Dates: start: 20060618, end: 20060619
  7. TEGRETOL [Concomitant]
     Route: 048
  8. BENZALIN [Concomitant]
     Route: 048
  9. THYRADIN-S [Concomitant]
     Route: 048
  10. AMINOFLUID [Concomitant]
     Route: 042
  11. [THERAPY UNSPECIFIED] [Concomitant]
     Route: 042
  12. SOLITA T-3 [Concomitant]
     Route: 042
  13. FOSFOMYCIN SODIUM [Suspect]
     Indication: PNEUMONIA
     Route: 042
     Dates: start: 20060615, end: 20060615
  14. NEO-MINOPHAGEN C [Concomitant]
     Route: 042
     Dates: start: 20060615, end: 20060625
  15. PENTCILLIN [Suspect]
     Indication: PNEUMONIA
     Route: 042
     Dates: start: 20060619, end: 20060619
  16. PENTCILLIN [Suspect]
     Route: 042
     Dates: start: 20060620, end: 20060622

REACTIONS (1)
  - HEPATIC FUNCTION ABNORMAL [None]
